FAERS Safety Report 5928109-1 (Version None)
Quarter: 2008Q4

REPORT INFORMATION
  Report Type: 
  Country: None (occurrence: None)
  Receive Date: 20081023
  Receipt Date: 20081016
  Transmission Date: 20090506
  Serious: Yes (Other)
  Sender: FDA-Public Use
  Company Number: GB-ASTRAZENECA-2008GB01978

PATIENT
  Age: 41 Year
  Sex: Male

DRUGS (4)
  1. PROPOFOL [Suspect]
     Indication: GENERAL ANAESTHESIA
     Dosage: 150MG
     Route: 042
     Dates: start: 20080722, end: 20080722
  2. BECOTIDE [Concomitant]
     Indication: ASTHMA
     Route: 055
  3. FENTANYL CITRATE [Concomitant]
     Indication: GENERAL ANAESTHESIA
     Dosage: 10MG
     Route: 042
     Dates: start: 20080722, end: 20080722
  4. VENTOLIN [Concomitant]
     Indication: ASTHMA
     Route: 055

REACTIONS (2)
  - AGITATION [None]
  - TONIC CLONIC MOVEMENTS [None]
